FAERS Safety Report 18760081 (Version 1)
Quarter: 2021Q1

REPORT INFORMATION
  Report Type: Spontaneous
  Country: US (occurrence: US)
  Receive Date: 20210119
  Receipt Date: 20210119
  Transmission Date: 20210419
  Serious: No
  Sender: FDA-Public Use
  Company Number: US-ALXN-A202100463

PATIENT

DRUGS (4)
  1. SOLIRIS [Suspect]
     Active Substance: ECULIZUMAB
     Indication: BONE MARROW TRANSPLANT
  2. SOLIRIS [Suspect]
     Active Substance: ECULIZUMAB
     Indication: AUTOLOGOUS HAEMATOPOIETIC STEM CELL TRANSPLANT
  3. SOLIRIS [Suspect]
     Active Substance: ECULIZUMAB
     Indication: OFF LABEL USE
     Dosage: UNK
     Route: 065
  4. SOLIRIS [Suspect]
     Active Substance: ECULIZUMAB
     Indication: THROMBOTIC MICROANGIOPATHY

REACTIONS (1)
  - Off label use [Unknown]
